FAERS Safety Report 15281876 (Version 1)
Quarter: 2018Q3

REPORT INFORMATION
  Report Type: Spontaneous
  Country: US (occurrence: US)
  Receive Date: 20180731
  Receipt Date: 20180731
  Transmission Date: 20181010
  Serious: No
  Sender: FDA-Public Use
  Company Number: None

PATIENT
  Age: 66 Year
  Sex: Male
  Weight: 87.3 kg

DRUGS (2)
  1. PRIVIGEN [Suspect]
     Active Substance: HUMAN IMMUNOGLOBULIN G
     Indication: PRIMARY IMMUNODEFICIENCY SYNDROME
     Dosage: ?          OTHER FREQUENCY:EVERY 4 WEEKS;?
     Route: 042
     Dates: start: 20180709, end: 20180709
  2. PRIVIGEN [Suspect]
     Active Substance: HUMAN IMMUNOGLOBULIN G
     Indication: PRIMARY IMMUNODEFICIENCY SYNDROME
     Dosage: ?          OTHER FREQUENCY:EVERY 4 WEEKS;?
     Route: 042
     Dates: start: 20180709, end: 20180709

REACTIONS (1)
  - Chills [None]

NARRATIVE: CASE EVENT DATE: 20180709
